FAERS Safety Report 10218703 (Version 3)
Quarter: 2014Q2

REPORT INFORMATION
  Report Type: Report from Study
  Country: US (occurrence: US)
  Receive Date: 20140605
  Receipt Date: 20140627
  Transmission Date: 20141212
  Serious: Yes (Other)
  Sender: FDA-Public Use
  Company Number: PHEH2014US009031

PATIENT
  Age: 84 Year
  Sex: Male
  Weight: 95.7 kg

DRUGS (6)
  1. AFINITOR [Suspect]
     Indication: RENAL CANCER
     Dosage: 10 MG, ONCE DAILY
     Route: 048
     Dates: start: 20140424, end: 20140507
  2. ATARAX                                  /CAN/ [Concomitant]
     Indication: PRURITUS
     Dosage: 10 MG, BID
     Route: 048
  3. SYNTHROID [Concomitant]
     Indication: BLOOD THYROID STIMULATING HORMONE DECREASED
     Dosage: 100 MG, DAILY
     Route: 048
  4. SIMVASTATIN [Concomitant]
     Indication: DYSLIPIDAEMIA
     Dosage: 20 MG, DAILY
     Route: 048
  5. FLOMAX ^BOEHRINGER INGELHEIM^ [Concomitant]
     Indication: URINE FLOW DECREASED
     Dosage: 0.4 MG, DAILY
     Route: 048
  6. TYLENOL [Concomitant]
     Indication: SLEEP DISORDER
     Route: 048

REACTIONS (4)
  - Eating disorder [Recovered/Resolved]
  - Asthenia [Recovered/Resolved]
  - Nausea [Recovered/Resolved]
  - Malaise [Unknown]
